FAERS Safety Report 10189619 (Version 1)
Quarter: 2014Q2

REPORT INFORMATION
  Report Type: Spontaneous
  Country: US (occurrence: None)
  Receive Date: 20140521
  Receipt Date: 20140521
  Transmission Date: 20141212
  Serious: Yes (Hospitalization)
  Sender: FDA-Public Use
  Company Number: None

PATIENT
  Age: 86 Year
  Sex: Male

DRUGS (4)
  1. IMBRUVICA [Suspect]
     Indication: LYMPHOCYTIC LEUKAEMIA
     Route: 048
     Dates: start: 20140424
  2. LOTREL [Concomitant]
  3. LIPITOR [Concomitant]
  4. TIMOLOL 0.5% EYE DROPS [Concomitant]

REACTIONS (1)
  - Drug dose omission [None]
